FAERS Safety Report 25032228 (Version 1)
Quarter: 2025Q1

REPORT INFORMATION
  Report Type: Spontaneous
  Country: FR (occurrence: FR)
  Receive Date: 20250303
  Receipt Date: 20250303
  Transmission Date: 20250408
  Serious: Yes (Hospitalization)
  Sender: CIPLA
  Company Number: FR-AFSSAPS-SE2025000169

PATIENT

DRUGS (2)
  1. RIVAROXABAN [Suspect]
     Active Substance: RIVAROXABAN
     Indication: Venous thrombosis
     Dosage: 20 MILLIGRAM, QD
     Route: 048
     Dates: start: 20241203, end: 20241218
  2. ELIQUIS [Suspect]
     Active Substance: APIXABAN
     Indication: Venous thrombosis
     Dosage: 1 DOSAGE FORM, QD
     Route: 048
     Dates: start: 202412, end: 20250107

REACTIONS (1)
  - Vascular purpura [Not Recovered/Not Resolved]

NARRATIVE: CASE EVENT DATE: 20241218
